FAERS Safety Report 11872277 (Version 2)
Quarter: 2016Q1

REPORT INFORMATION
  Report Type: Spontaneous
  Country: US (occurrence: US)
  Receive Date: 20151228
  Receipt Date: 20160105
  Transmission Date: 20160526
  Serious: Yes (Other)
  Sender: FDA-Public Use
  Company Number: US-TEVA-620789USA

PATIENT
  Sex: Female

DRUGS (4)
  1. TOPOTECAN [Suspect]
     Active Substance: TOPOTECAN\TOPOTECAN HYDROCHLORIDE
     Indication: MEDULLOBLASTOMA RECURRENT
     Dosage: 6 CYCLES OF 2 MG/M2 FOR 4 DAYS
  2. CISPLATIN. [Suspect]
     Active Substance: CISPLATIN
     Indication: MEDULLOBLASTOMA RECURRENT
     Dosage: 6 CYCLES OF 75 MG/M2 FOR 1 DAY
  3. CYCLOPHOSPHAMIDE. [Suspect]
     Active Substance: CYCLOPHOSPHAMIDE
     Indication: MEDULLOBLASTOMA RECURRENT
     Dosage: 6 CYCLES OF 2100 MG/M2 FOR 2 DAYS
  4. ETOPOSIDE. [Suspect]
     Active Substance: ETOPOSIDE
     Indication: MEDULLOBLASTOMA RECURRENT
     Dosage: 6 CYCLES OF 100 MG/M2 FOR 2 DAYS

REACTIONS (3)
  - Thrombocytopenia [Unknown]
  - Mucosal inflammation [Unknown]
  - Infection [Unknown]
